FAERS Safety Report 22351699 (Version 6)
Quarter: 2024Q2

REPORT INFORMATION
  Report Type: Spontaneous
  Country: BR (occurrence: BR)
  Receive Date: 20230522
  Receipt Date: 20240524
  Transmission Date: 20240716
  Serious: Yes (Other)
  Sender: FDA-Public Use
  Company Number: BR-BAXTER-2023BAX022002

PATIENT
  Age: 34 Year
  Sex: Female
  Weight: 64.7 kg

DRUGS (2)
  1. IRON [Suspect]
     Active Substance: IRON
     Indication: Iron deficiency
     Dosage: 40 MG/ML PER 2 HOURS (2 AMPOULES DILUTED 250 ML OF SODIUM CHLORIDE 0.9%)
     Route: 042
     Dates: start: 20230511, end: 20230511
  2. SODIUM CHLORIDE [Suspect]
     Active Substance: SODIUM CHLORIDE
     Indication: Medication dilution
     Dosage: 250 ML (USED TO DILUTE 2 AMPOULES OF SUCROFER) IN 2 HOURS
     Route: 042
     Dates: start: 20230511, end: 20230511

REACTIONS (6)
  - Paraesthesia [Recovered/Resolved]
  - Abdominal pain [Recovered/Resolved]
  - Dyspnoea [Recovered/Resolved]
  - Pain [Recovered/Resolved]
  - Back pain [Recovered/Resolved]
  - Exposure during pregnancy [Recovered/Resolved]

NARRATIVE: CASE EVENT DATE: 20230511
